FAERS Safety Report 8885340 (Version 1)
Quarter: 2012Q4

REPORT INFORMATION
  Report Type: 
  Country: US (occurrence: US)
  Receive Date: 20121102
  Receipt Date: 20121102
  Transmission Date: 20130627
  Serious: Yes (Other)
  Sender: FDA-Public Use
  Company Number: US-BIOGENIDEC-2012BI047549

PATIENT
  Sex: Female

DRUGS (1)
  1. AVONEX [Suspect]
     Indication: MULTIPLE SCLEROSIS
     Route: 030
     Dates: start: 19970601, end: 20110430

REACTIONS (4)
  - Breast cancer [Not Recovered/Not Resolved]
  - Asthma [Unknown]
  - Influenza like illness [Unknown]
  - Alopecia [Not Recovered/Not Resolved]
